FAERS Safety Report 12978353 (Version 2)
Quarter: 2018Q2

REPORT INFORMATION
  Report Type: Spontaneous
  Country: FR (occurrence: FR)
  Receive Date: 20161128
  Receipt Date: 20180621
  Transmission Date: 20180711
  Serious: Yes (Death, Other)
  Sender: FDA-Public Use
  Company Number: FR-JAZZ-2016-FR-022959

PATIENT

DRUGS (2)
  1. DEFITELIO [Suspect]
     Active Substance: DEFIBROTIDE SODIUM
     Indication: VENOOCCLUSIVE DISEASE
     Dosage: UNK,
     Route: 065
  2. DEFITELIO [Suspect]
     Active Substance: DEFIBROTIDE SODIUM
     Indication: MULTIPLE ORGAN DYSFUNCTION SYNDROME
     Dosage: 25 MG/KG, QD
     Dates: start: 20160628, end: 20160704

REACTIONS (5)
  - Multiple organ dysfunction syndrome [Fatal]
  - Condition aggravated [Fatal]
  - Transplant failure [Fatal]
  - Drug ineffective [Fatal]
  - Cerebral toxoplasmosis [Unknown]

NARRATIVE: CASE EVENT DATE: 201611
